FAERS Safety Report 16581374 (Version 1)
Quarter: 2019Q3

REPORT INFORMATION
  Report Type: Spontaneous
  Country: US (occurrence: US)
  Receive Date: 20190716
  Receipt Date: 20190716
  Transmission Date: 20191004
  Serious: No
  Sender: FDA-Public Use
  Company Number: US-UPSHER-SMITH LABORATORIES, LLC-2018USL00543

PATIENT
  Sex: Male
  Weight: 83.9 kg

DRUGS (7)
  1. TESTOSTERONE. [Suspect]
     Active Substance: TESTOSTERONE
     Dosage: 75 MG, 1X/DAY
     Route: 061
  2. LOSARTAN. [Concomitant]
     Active Substance: LOSARTAN
  3. TESTOSTERONE. [Suspect]
     Active Substance: TESTOSTERONE
     Indication: HYPOGONADISM
     Dosage: 50 MG, 1X/DAY
     Route: 061
  4. TESTOSTERONE. [Suspect]
     Active Substance: TESTOSTERONE
     Dosage: 100 MG, 1X/DAY
     Route: 061
  5. LOVASTATIN. [Concomitant]
     Active Substance: LOVASTATIN
  6. TAMSULOSIN [Concomitant]
     Active Substance: TAMSULOSIN
  7. TESTOSTERONE. [Suspect]
     Active Substance: TESTOSTERONE
     Dosage: 50 MG, 1X/DAY
     Route: 061

REACTIONS (2)
  - Haematocrit increased [Recovered/Resolved]
  - Back pain [Not Recovered/Not Resolved]
